FAERS Safety Report 8299764-9 (Version None)
Quarter: 2012Q2

REPORT INFORMATION
  Report Type: 
  Country: None (occurrence: None)
  Receive Date: 20120419
  Receipt Date: 20120417
  Transmission Date: 20120825
  Serious: Yes (Hospitalization)
  Sender: FDA-Public Use
  Company Number: FR-MERCK-1008FRA00033

PATIENT
  Age: 65 Year
  Sex: Male

DRUGS (7)
  1. PRETERAX (INDAPAMIDE (+) PERINDOPRIL ARGININE) [Suspect]
     Route: 048
     Dates: end: 20100603
  2. INSULIN ASPART, BIPHASIC ISOPHANE [INJECTION] [Concomitant]
     Route: 058
  3. VYTORIN [Suspect]
     Indication: HYPERCHOLESTEROLAEMIA
     Route: 048
     Dates: start: 20050101, end: 20100602
  4. NEBIVOLOL HYDROCHLORIDE [Concomitant]
     Route: 048
  5. RABEPRAZOLE SODIUM [Concomitant]
     Route: 048
  6. FUROSEMIDE [Suspect]
     Route: 048
  7. PERINDOPRIL ERBUMINE [Suspect]
     Route: 048
     Dates: end: 20100603

REACTIONS (2)
  - RHABDOMYOLYSIS [None]
  - RENAL FAILURE [None]
